FAERS Safety Report 6408968-9 (Version None)
Quarter: 2009Q4

REPORT INFORMATION
  Report Type: 
  Country: None (occurrence: None)
  Receive Date: 20091021
  Receipt Date: 20091016
  Transmission Date: 20100525
  Serious: Yes (Hospitalization)
  Sender: FDA-Public Use
  Company Number: JP-WYE-H11689509

PATIENT
  Age: 58 Year
  Sex: Female

DRUGS (11)
  1. ZOSYN [Suspect]
     Indication: PNEUMONIA
     Route: 041
     Dates: start: 20091008, end: 20091009
  2. ZOSYN [Suspect]
     Indication: PYOTHORAX
  3. VANCOMYCIN HYDROCHLORIDE [Suspect]
     Indication: PNEUMONIA
     Dosage: 1G/DAY
     Route: 041
     Dates: start: 20090929, end: 20090930
  4. VANCOMYCIN HYDROCHLORIDE [Suspect]
     Indication: PYOTHORAX
     Dosage: 2G/DAY
     Route: 041
     Dates: start: 20091001, end: 20091001
  5. VANCOMYCIN HYDROCHLORIDE [Suspect]
     Dosage: 4G/DAY
     Route: 041
     Dates: start: 20091002, end: 20091002
  6. VANCOMYCIN HYDROCHLORIDE [Suspect]
     Dosage: 3.5G/DAY
     Route: 041
     Dates: start: 20091003, end: 20091008
  7. VANCOMYCIN HYDROCHLORIDE [Suspect]
     Dosage: 1.5G/DAY
     Route: 041
     Dates: start: 20091009, end: 20091009
  8. AMPICILLIN SODIUM/SULBACTAM SODIUM [Suspect]
     Indication: PNEUMONIA
     Dosage: 6G DAILY
     Route: 041
     Dates: start: 20090929, end: 20091008
  9. AMPICILLIN SODIUM/SULBACTAM SODIUM [Suspect]
     Indication: PYOTHORAX
  10. CEFMETAZOLE SODIUM [Suspect]
     Indication: PNEUMONIA
     Dosage: 3G DAILY
     Route: 041
     Dates: start: 20090925, end: 20090928
  11. CEFMETAZOLE SODIUM [Suspect]
     Indication: PYOTHORAX

REACTIONS (2)
  - PYREXIA [None]
  - RENAL DISORDER [None]
